FAERS Safety Report 11276407 (Version 1)
Quarter: 2015Q3

REPORT INFORMATION
  Report Type: Spontaneous
  Country: US (occurrence: None)
  Receive Date: 20150715
  Receipt Date: 20150715
  Transmission Date: 20151125
  Serious: No
  Sender: FDA-Public Use
  Company Number: None

PATIENT
  Age: 15 Month
  Sex: Male
  Weight: 11.34 kg

DRUGS (2)
  1. RANITIDINE [Concomitant]
     Active Substance: RANITIDINE\RANITIDINE HYDROCHLORIDE
  2. SUPRAX [Suspect]
     Active Substance: CEFIXIME
     Indication: EAR INFECTION
     Dosage: 2.5 ML, ONCE DAILY, TAKEN BY MOUTH
     Route: 048
     Dates: start: 20150708, end: 20150709

REACTIONS (2)
  - Vomiting [None]
  - Rash generalised [None]

NARRATIVE: CASE EVENT DATE: 20150709
